FAERS Safety Report 4411848-1 (Version None)
Quarter: 2004Q3

REPORT INFORMATION
  Report Type: 
  Country: None (occurrence: None)
  Receive Date: 20040730
  Receipt Date: 20040623
  Transmission Date: 20050211
  Serious: No
  Sender: FDA-Public Use
  Company Number: US-GLAXOSMITHKLINE-A0515754A

PATIENT
  Age: 83 Year
  Sex: Female

DRUGS (3)
  1. VENTOLIN [Suspect]
     Indication: ASTHMA
     Dosage: 2PUFF AS REQUIRED
     Route: 055
     Dates: start: 20040201
  2. ATENOLOL [Concomitant]
  3. TYLENOL [Concomitant]

REACTIONS (2)
  - MOUTH ULCERATION [None]
  - ORAL PAIN [None]
